FAERS Safety Report 13195054 (Version 2)
Quarter: 2017Q1

REPORT INFORMATION
  Report Type: Spontaneous
  Country: US (occurrence: US)
  Receive Date: 20170207
  Receipt Date: 20170214
  Transmission Date: 20170428
  Serious: No
  Sender: FDA-Public Use
  Company Number: US-009507513-1701USA011913

PATIENT

DRUGS (6)
  1. TYLENOL [Concomitant]
     Active Substance: ACETAMINOPHEN
  2. IMITREX [Concomitant]
     Active Substance: SUMATRIPTAN SUCCINATE
  3. TESSALON [Concomitant]
     Active Substance: BENZONATATE
  4. METHADONE HYDROCHLORIDE. [Concomitant]
     Active Substance: METHADONE HYDROCHLORIDE
  5. ZEPATIER [Suspect]
     Active Substance: ELBASVIR\GRAZOPREVIR
     Indication: HEPATITIS C
     Dosage: TAKE 1 TABLET BY MOUTH EVERY DAY, DOSAGE FORM 50-100 MG
     Route: 048
     Dates: start: 201612
  6. PANTOPRAZOLE [Concomitant]
     Active Substance: PANTOPRAZOLE SODIUM

REACTIONS (3)
  - Migraine [Unknown]
  - Nausea [Recovered/Resolved]
  - Headache [Unknown]
